FAERS Safety Report 5039229-0 (Version None)
Quarter: 2006Q2

REPORT INFORMATION
  Report Type: 
  Country: None (occurrence: None)
  Receive Date: 20060629
  Receipt Date: 20060623
  Transmission Date: 20061013
  Serious: Yes (Life-Threatening, Hospitalization)
  Sender: FDA-Public Use
  Company Number: PHRM2006FR01871

PATIENT
  Sex: Male

DRUGS (2)
  1. TRILEPTAL [Suspect]
     Route: 048
  2. DRUG THERAPY NOS [Concomitant]

REACTIONS (2)
  - RENAL IMPAIRMENT [None]
  - RHABDOMYOLYSIS [None]
